FAERS Safety Report 20872410 (Version 1)
Quarter: 2022Q2

REPORT INFORMATION
  Report Type: Other
  Country: US (occurrence: None)
  Receive Date: 20220525
  Receipt Date: 20220525
  Transmission Date: 20220721
  Serious: No
  Sender: FDA-Public Use
  Company Number: US-ROCHE-3103131

PATIENT
  Age: 64 Year
  Sex: Male
  Weight: 95.340 kg

DRUGS (14)
  1. OCREVUS [Suspect]
     Active Substance: OCRELIZUMAB
     Indication: Relapsing-remitting multiple sclerosis
     Route: 042
     Dates: start: 20211116
  2. ACYCLOVIR [Concomitant]
     Active Substance: ACYCLOVIR
  3. PRILOSEC [Concomitant]
     Active Substance: OMEPRAZOLE MAGNESIUM
  4. PEPCID AC [Concomitant]
     Active Substance: FAMOTIDINE
  5. LIPITOR [Concomitant]
     Active Substance: ATORVASTATIN CALCIUM
  6. UROXATRAL [Concomitant]
     Active Substance: ALFUZOSIN HYDROCHLORIDE
  7. AMANTADINE [Concomitant]
     Active Substance: AMANTADINE
  8. CALCIUM [Concomitant]
     Active Substance: CALCIUM
  9. VITAMIN C [Concomitant]
     Active Substance: ASCORBIC ACID
  10. FLONASE [Concomitant]
     Active Substance: FLUTICASONE PROPIONATE
  11. DILTIAZEM [Concomitant]
     Active Substance: DILTIAZEM
  12. PROLIA [Concomitant]
     Active Substance: DENOSUMAB
  13. LOSARTAN [Concomitant]
     Active Substance: LOSARTAN
  14. CYCLOBENZAPRINE [Concomitant]
     Active Substance: CYCLOBENZAPRINE

REACTIONS (1)
  - COVID-19 [Not Recovered/Not Resolved]

NARRATIVE: CASE EVENT DATE: 20220520
